FAERS Safety Report 4761579-3 (Version None)
Quarter: 2005Q3

REPORT INFORMATION
  Report Type: 
  Country: None (occurrence: None)
  Receive Date: 20050901
  Receipt Date: 20050901
  Transmission Date: 20060218
  Serious: Yes (Hospitalization)
  Sender: FDA-Public Use
  Company Number: None

PATIENT
  Age: 69 Year
  Sex: Female

DRUGS (13)
  1. METOPROLOL [Suspect]
  2. ZAROXOLYN [Concomitant]
  3. PLENDIL [Concomitant]
  4. CLONIDINE -CATAPRES- [Concomitant]
  5. MONOPRIL [Concomitant]
  6. ISOSORBIDE DINITRATE -ISORDIL [Concomitant]
  7. METOPROLOL -TOPROL XL [Concomitant]
  8. CARDURA [Concomitant]
  9. COUMADIN [Concomitant]
  10. LASIX [Concomitant]
  11. ZYLOPRIM [Concomitant]
  12. GLUCOTROL [Concomitant]
  13. . [Concomitant]

REACTIONS (7)
  - ATRIAL FIBRILLATION [None]
  - BRADYCARDIA [None]
  - CONDITION AGGRAVATED [None]
  - HYPOTENSION [None]
  - OEDEMA PERIPHERAL [None]
  - PAIN IN EXTREMITY [None]
  - TACHYCARDIA [None]
